FAERS Safety Report 21322261 (Version 1)
Quarter: 2022Q3

REPORT INFORMATION
  Report Type: Spontaneous
  Country: US (occurrence: US)
  Receive Date: 20220912
  Receipt Date: 20220912
  Transmission Date: 20221026
  Serious: Yes (Death, Other)
  Sender: FDA-Public Use
  Company Number: US-BRISTOL-MYERS SQUIBB COMPANY-2022-104058

PATIENT
  Age: 64 Year
  Sex: Female
  Weight: 120.11 kg

DRUGS (1)
  1. OPDIVO [Suspect]
     Active Substance: NIVOLUMAB
     Indication: Small cell lung cancer metastatic
     Dosage: ONCE DAILY EVERY 28 DAYS
     Route: 042
     Dates: start: 20220727

REACTIONS (2)
  - Small cell lung cancer metastatic [Fatal]
  - Off label use [Unknown]
